FAERS Safety Report 9688293 (Version 1)
Quarter: 2013Q4

REPORT INFORMATION
  Report Type: Spontaneous
  Country: US (occurrence: None)
  Receive Date: 20131113
  Receipt Date: 20131113
  Transmission Date: 20140711
  Serious: No
  Sender: FDA-Public Use
  Company Number: None

PATIENT
  Age: 62 Year
  Sex: Female

DRUGS (1)
  1. SEPTRA DS [Suspect]
     Indication: URINARY TRACT INFECTION
     Dosage: ONE TWICE DAILY TAKEN BY MOUTH
     Dates: start: 20131111, end: 20131112

REACTIONS (4)
  - Insomnia [None]
  - Rash pruritic [None]
  - Swelling face [None]
  - Rash erythematous [None]
